FAERS Safety Report 5070017-5 (Version None)
Quarter: 2006Q3

REPORT INFORMATION
  Report Type: 
  Country: None (occurrence: None)
  Receive Date: 20060731
  Receipt Date: 20060718
  Transmission Date: 20061208
  Serious: Yes (Death)
  Sender: FDA-Public Use
  Company Number: CIP06001658

PATIENT
  Age: 70 Year
  Sex: Female

DRUGS (15)
  1. RISEDRONATE SODIUM [Suspect]
     Indication: OSTEOPOROSIS PROPHYLAXIS
     Dosage: 2.5 MG, DAILY, ORAL
     Route: 048
     Dates: start: 20060210, end: 20060306
  2. BAKUMONDOUTO (HERBAL EXTRACT NOS) [Suspect]
     Indication: ASTHMA
     Dosage: 9 G, DAILY, ORAL
     Route: 048
     Dates: start: 20060210, end: 20060306
  3. LASIX [Concomitant]
  4. DIGOXIN [Concomitant]
  5. WARFARIN SODIUM [Concomitant]
  6. ALLOPURINOL [Concomitant]
  7. PROCATEROL HCL [Concomitant]
  8. ONON (PRANLUKAST) [Concomitant]
  9. ISOSORBIDE DINITRATE [Concomitant]
  10. PERSANTIN [Concomitant]
  11. FAMOTIDINE [Concomitant]
  12. ALOSENN (TARAXACUM OFFICINALE, SENNA ALEXANDRINA LEAF, SENNA ALEXANDRI [Concomitant]
  13. GLYBURIDE [Concomitant]
  14. BASEN (VOGLIBOSE) [Concomitant]
  15. METFORMIN HYDROCHLORIDE [Concomitant]

REACTIONS (4)
  - C-REACTIVE PROTEIN INCREASED [None]
  - DISSEMINATED INTRAVASCULAR COAGULATION [None]
  - THROMBOCYTOPENIA [None]
  - WHITE BLOOD CELL COUNT INCREASED [None]
